FAERS Safety Report 5456566-6 (Version None)
Quarter: 2007Q3

REPORT INFORMATION
  Report Type: 
  Country: None (occurrence: None)
  Receive Date: 20070918
  Receipt Date: 20070531
  Transmission Date: 20080115
  Serious: Yes (Other)
  Sender: FDA-Public Use
  Company Number: US-ASTRAZENECA-2006UW25353

PATIENT
  Age: 436 Month
  Sex: Female
  Weight: 45.5 kg

DRUGS (2)
  1. SEROQUEL [Suspect]
     Indication: DEPRESSION
     Dosage: 50 MG - 100 MG
     Route: 048
     Dates: start: 20020528, end: 20040601
  2. SEROQUEL [Suspect]
     Indication: ANXIETY
     Dosage: 50 MG - 100 MG
     Route: 048
     Dates: start: 20020528, end: 20040601

REACTIONS (2)
  - HYPERGLYCAEMIA [None]
  - PANCREATITIS [None]
